FAERS Safety Report 22015776 (Version 1)
Quarter: 2023Q1

REPORT INFORMATION
  Report Type: Report from Study
  Country: GB (occurrence: GB)
  Receive Date: 20230221
  Receipt Date: 20230221
  Transmission Date: 20230418
  Serious: Yes (Hospitalization)
  Sender: FDA-Public Use
  Company Number: GB-002147023-NVSC2023GB039353

PATIENT
  Age: 57 Year
  Sex: Male

DRUGS (1)
  1. SIPONIMOD [Suspect]
     Active Substance: SIPONIMOD
     Indication: Secondary progressive multiple sclerosis
     Dosage: 2 MG, QD
     Route: 048
     Dates: start: 20210831

REACTIONS (5)
  - Escherichia urinary tract infection [Recovering/Resolving]
  - Abdominal pain [Unknown]
  - Muscle twitching [Unknown]
  - Muscular weakness [Unknown]
  - Facial paralysis [Unknown]

NARRATIVE: CASE EVENT DATE: 20230209
